FAERS Safety Report 13396741 (Version 6)
Quarter: 2018Q2

REPORT INFORMATION
  Report Type: Report from Study
  Country: US (occurrence: US)
  Receive Date: 20170403
  Receipt Date: 20180605
  Transmission Date: 20180711
  Serious: Yes (Other)
  Sender: FDA-Public Use
  Company Number: US-JAZZ-2017-US-002409

PATIENT
  Age: 39 Year
  Sex: Female

DRUGS (38)
  1. TRAZODONE [Concomitant]
     Active Substance: TRAZODONE HYDROCHLORIDE
  2. MELATONIN [Concomitant]
     Active Substance: MELATONIN
  3. RANITIDINE. [Concomitant]
     Active Substance: RANITIDINE
  4. MELOXICAM. [Concomitant]
     Active Substance: MELOXICAM
  5. DOXEPIN [Concomitant]
     Active Substance: DOXEPIN
  6. PROPRANOLOL [Concomitant]
     Active Substance: PROPRANOLOL HYDROCHLORIDE
  7. SPIRONOLACTON [Concomitant]
     Active Substance: SPIRONOLACTONE
  8. XYREM [Suspect]
     Active Substance: SODIUM OXYBATE
     Dosage: 4.5 G, BID
     Route: 048
     Dates: start: 201701
  9. ZALEPLON. [Concomitant]
     Active Substance: ZALEPLON
  10. BACLOFEN. [Concomitant]
     Active Substance: BACLOFEN
  11. RISPERDAL [Concomitant]
     Active Substance: RISPERIDONE
  12. XANAX [Concomitant]
     Active Substance: ALPRAZOLAM
  13. HALCION [Concomitant]
     Active Substance: TRIAZOLAM
  14. EFFEXOR [Concomitant]
     Active Substance: VENLAFAXINE HYDROCHLORIDE
  15. RETINOL ACETAT [Concomitant]
  16. ONDANSETRON [Concomitant]
     Active Substance: ONDANSETRON
  17. CEFADROXIL. [Concomitant]
     Active Substance: CEFADROXIL
  18. DIFFERIN [Concomitant]
     Active Substance: ADAPALENE
  19. DIPHENOXYLATE/ATROPINE [Concomitant]
     Active Substance: ATROPINE\DIPHENOXYLATE
  20. CLINDAMYCIN HYDROCHLORIDE. [Concomitant]
     Active Substance: CLINDAMYCIN HYDROCHLORIDE
  21. AMITRIPTYLINE HCL [Concomitant]
     Active Substance: AMITRIPTYLINE
  22. HYDROCHLOROTHIAZIDE. [Concomitant]
     Active Substance: HYDROCHLOROTHIAZIDE
  23. CALCIUM + D DUETTO [Concomitant]
     Active Substance: CALCIUM\CHOLECALCIFEROL
  24. GABAPENTIN. [Concomitant]
     Active Substance: GABAPENTIN
  25. LAMICTAL [Concomitant]
     Active Substance: LAMOTRIGINE
  26. KLOR-CON [Concomitant]
     Active Substance: POTASSIUM CHLORIDE
  27. CYCLOBENZAPRINE. [Concomitant]
     Active Substance: CYCLOBENZAPRINE
  28. IBUPROFEN. [Concomitant]
     Active Substance: IBUPROFEN
  29. ACANYA [Concomitant]
     Active Substance: BENZOYL PEROXIDE\CLINDAMYCIN PHOSPHATE
  30. CLONAZEPAM. [Concomitant]
     Active Substance: CLONAZEPAM
  31. LEXAPRO [Concomitant]
     Active Substance: ESCITALOPRAM OXALATE
  32. MAGNESIUM OXIDE. [Concomitant]
     Active Substance: MAGNESIUM OXIDE
  33. REMERON [Concomitant]
     Active Substance: MIRTAZAPINE
  34. ROBAXIN [Concomitant]
     Active Substance: METHOCARBAMOL
  35. XYREM [Suspect]
     Active Substance: SODIUM OXYBATE
     Indication: NARCOLEPSY
     Dosage: 2.25 G, BID
     Route: 048
     Dates: start: 200709, end: 200711
  36. XYREM [Suspect]
     Active Substance: SODIUM OXYBATE
     Indication: CATAPLEXY
     Dosage: DOSE ADJSUTMENT
     Route: 048
     Dates: start: 200711, end: 201701
  37. MODAFINIL. [Suspect]
     Active Substance: MODAFINIL
     Indication: PRODUCT USED FOR UNKNOWN INDICATION
     Dosage: UNK, PRN
     Route: 065
  38. DIPHENHYDRAMINE HYDROCHLORIDE. [Concomitant]
     Active Substance: DIPHENHYDRAMINE HYDROCHLORIDE

REACTIONS (10)
  - Gallbladder disorder [Recovered/Resolved]
  - Parasomnia [Unknown]
  - Nausea [Not Recovered/Not Resolved]
  - Somnambulism [Unknown]
  - Diarrhoea [Unknown]
  - Colitis [Recovered/Resolved]
  - Malaise [Unknown]
  - Incorrect dose administered [Unknown]
  - Vomiting [Unknown]
  - Blood pressure increased [Recovering/Resolving]

NARRATIVE: CASE EVENT DATE: 201602
